FAERS Safety Report 4604595-4 (Version None)
Quarter: 2005Q2

REPORT INFORMATION
  Report Type: 
  Country: None (occurrence: None)
  Receive Date: 20050223
  Receipt Date: 20041222
  Transmission Date: 20051028
  Serious: No
  Sender: FDA-Public Use
  Company Number: PHEH2004US13550

PATIENT
  Age: 90 Year
  Sex: Female

DRUGS (2)
  1. ZELNORM [Suspect]
     Indication: IRRITABLE BOWEL SYNDROME
     Dates: start: 20041201
  2. TYLENOL (PARACETAMOL) [Concomitant]

REACTIONS (1)
  - FAECES DISCOLOURED [None]
